FAERS Safety Report 6758511-X (Version None)
Quarter: 2010Q2

REPORT INFORMATION
  Report Type: 
  Country: None (occurrence: None)
  Receive Date: 20100607
  Receipt Date: 20100607
  Transmission Date: 20101027
  Serious: Yes (Other)
  Sender: FDA-Public Use
  Company Number: B0637928A

PATIENT
  Sex: Female

DRUGS (2)
  1. ZOVIRAX [Suspect]
     Indication: ERYTHEMA MULTIFORME
     Dosage: 200MG TWICE PER DAY
     Route: 048
     Dates: start: 20090820
  2. BETNESOL [Concomitant]
     Indication: ERYTHEMA MULTIFORME
     Route: 002

REACTIONS (7)
  - BUTTERFLY RASH [None]
  - ERYTHEMA [None]
  - LOCAL SWELLING [None]
  - PHOTOSENSITIVITY REACTION [None]
  - PRURITUS [None]
  - RASH [None]
  - ROSACEA [None]
